FAERS Safety Report 7029580-7 (Version None)
Quarter: 2010Q4

REPORT INFORMATION
  Report Type: 
  Country: None (occurrence: None)
  Receive Date: 20101005
  Receipt Date: 20100928
  Transmission Date: 20110411
  Serious: Yes (Hospitalization, Other)
  Sender: FDA-Public Use
  Company Number: FR-MERCK-1009FRA00106

PATIENT
  Age: 62 Year
  Sex: Female

DRUGS (4)
  1. NOROXIN [Suspect]
     Indication: SEPSIS
     Route: 048
     Dates: start: 20100630, end: 20100702
  2. CEFTRIAXONE SODIUM [Concomitant]
     Indication: SEPSIS
     Route: 065
     Dates: end: 20100629
  3. SPIRONOLACTONE [Concomitant]
     Route: 065
  4. PROPRANOLOL HYDROCHLORIDE [Concomitant]
     Route: 065

REACTIONS (2)
  - DELIRIUM [None]
  - PHYSICAL ASSAULT [None]
